FAERS Safety Report 5010380-4 (Version None)
Quarter: 2006Q2

REPORT INFORMATION
  Report Type: 
  Country: None (occurrence: None)
  Receive Date: 20060523
  Receipt Date: 20060508
  Transmission Date: 20061013
  Serious: Yes (Hospitalization)
  Sender: FDA-Public Use
  Company Number: 2006S1004028

PATIENT
  Age: 51 Year
  Sex: Male

DRUGS (3)
  1. PHENYTEK CAPSULES, USP (300 MG) [Suspect]
     Indication: GRAND MAL CONVULSION
     Dosage: 300 MG;HS;ORAL
     Route: 048
     Dates: start: 20020101
  2. PHENOBARBITAL (32 MG) [Suspect]
     Indication: GRAND MAL CONVULSION
     Dosage: 64 MG;BID;ORAL
     Route: 048
     Dates: start: 20020101
  3. GABAPENTIN [Suspect]
     Indication: GRAND MAL CONVULSION
     Dosage: 300 MG;BID;ORAL
     Route: 048
     Dates: start: 20020101

REACTIONS (5)
  - CONTUSION [None]
  - DRUG LEVEL DECREASED [None]
  - GRAND MAL CONVULSION [None]
  - ROAD TRAFFIC ACCIDENT [None]
  - TONGUE BITING [None]
